FAERS Safety Report 8234041-3 (Version None)
Quarter: 2012Q1

REPORT INFORMATION
  Report Type: 
  Country: None (occurrence: None)
  Receive Date: 20120326
  Receipt Date: 20120326
  Transmission Date: 20120608
  Serious: Yes (Life-Threatening, Hospitalization, Other)
  Sender: FDA-Public Use
  Company Number: None

PATIENT
  Age: 50 Year
  Sex: Female
  Weight: 81.8 kg

DRUGS (3)
  1. XARELTO [Suspect]
  2. XARELTO [Suspect]
     Indication: THROMBOSIS PROPHYLAXIS
     Dosage: 10 MG
     Route: 048
     Dates: start: 20120322, end: 20120323
  3. XARELTO [Suspect]
     Indication: KNEE ARTHROPLASTY
     Dosage: 10 MG
     Route: 048
     Dates: start: 20120322, end: 20120323

REACTIONS (1)
  - DEEP VEIN THROMBOSIS POSTOPERATIVE [None]
